FAERS Safety Report 4609497-5 (Version None)
Quarter: 2005Q1

REPORT INFORMATION
  Report Type: 
  Country: None (occurrence: None)
  Receive Date: 20050314
  Receipt Date: 20050314
  Transmission Date: 20050727
  Serious: Yes (Hospitalization)
  Sender: FDA-Public Use
  Company Number: None

PATIENT
  Age: 73 Year
  Sex: Male

DRUGS (11)
  1. WARFARIN [Suspect]
     Indication: ATRIAL FIBRILLATION
     Dosage: 2 MG QD
     Dates: start: 19960201
  2. METRONIDAZOLE [Suspect]
     Indication: INFECTION
     Dosage: 500 MG BID
     Dates: start: 20041118
  3. ALUMINUM HYDROXIDE AND MAGNESIUM TRISILICATE [Concomitant]
  4. OMEPRAZOLE [Concomitant]
  5. SALSALATE [Concomitant]
  6. TEMAZEPAM [Concomitant]
  7. LORAZEPAM [Concomitant]
  8. LORTAB [Concomitant]
  9. METOCLOPRAMIDE [Concomitant]
  10. ZOCOR [Concomitant]
  11. TAMSULOSIN [Concomitant]

REACTIONS (1)
  - CONTUSION [None]
